FAERS Safety Report 14096572 (Version 1)
Quarter: 2017Q4

REPORT INFORMATION
  Report Type: Spontaneous
  Country: US (occurrence: US)
  Receive Date: 20171017
  Receipt Date: 20171017
  Transmission Date: 20180321
  Serious: Yes (Other)
  Sender: FDA-Public Use
  Company Number: US-ACCORD-059894

PATIENT
  Age: 23 Year
  Sex: Female
  Weight: 52.16 kg

DRUGS (1)
  1. SERTRALINE [Suspect]
     Active Substance: SERTRALINE HYDROCHLORIDE
     Indication: DEPRESSION
     Dosage: ONE AND HALF DAILY
     Route: 048
     Dates: start: 20170920

REACTIONS (6)
  - Drug ineffective [Unknown]
  - Suicidal ideation [Unknown]
  - Anxiety [Unknown]
  - Depression [Unknown]
  - Eating disorder [Unknown]
  - Apathy [Unknown]
